FAERS Safety Report 6471568-9 (Version None)
Quarter: 2009Q4

REPORT INFORMATION
  Report Type: 
  Country: None (occurrence: None)
  Receive Date: 20091203
  Receipt Date: 20091123
  Transmission Date: 20100525
  Serious: Yes (Hospitalization)
  Sender: FDA-Public Use
  Company Number: DE-TEVA-216337ISR

PATIENT
  Age: 70 Year
  Sex: Male

DRUGS (12)
  1. ENALAPRIL MALEATE AND HYDROCHLOROTHIAZIDE [Interacting]
     Dosage: 10/25 MG
     Route: 048
     Dates: end: 20090519
  2. BIPERIDEN HYDROCHLORIDE [Suspect]
     Route: 048
  3. ALLOPURINOL [Suspect]
     Route: 048
     Dates: start: 20090519
  4. VALPROATE SODIUM [Suspect]
     Route: 048
     Dates: start: 20090526
  5. VALPROATE SODIUM [Suspect]
     Route: 048
     Dates: start: 20090527, end: 20090528
  6. VALPROATE SODIUM [Suspect]
     Route: 048
     Dates: start: 20090529, end: 20090603
  7. VALPROATE SODIUM [Suspect]
     Route: 048
     Dates: start: 20090604, end: 20090605
  8. MELPERONE HYDROCHLORIDE [Suspect]
     Route: 048
     Dates: start: 20090525, end: 20090604
  9. MELPERONE HYDROCHLORIDE [Suspect]
     Route: 048
     Dates: start: 20090525, end: 20090604
  10. MELPERONE HYDROCHLORIDE [Suspect]
     Route: 048
     Dates: start: 20090605, end: 20090609
  11. HALOPERIDOL [Suspect]
     Route: 030
  12. LITHIUM CARBONATE [Suspect]
     Route: 048
     Dates: end: 20090519

REACTIONS (1)
  - ATRIOVENTRICULAR BLOCK [None]
